FAERS Safety Report 7395621-0 (Version None)
Quarter: 2011Q2

REPORT INFORMATION
  Report Type: 
  Country: None (occurrence: None)
  Receive Date: 20110405
  Receipt Date: 20090911
  Transmission Date: 20111010
  Serious: Yes (Other)
  Sender: FDA-Public Use
  Company Number: PHHY2009DE67603

PATIENT
  Sex: Female

DRUGS (1)
  1. EXTAVIA [Suspect]
     Route: 058
     Dates: start: 20090715

REACTIONS (6)
  - EFFUSION [None]
  - INJECTION SITE DISCOLOURATION [None]
  - ANGIOPATHY [None]
  - INJECTION SITE ERYTHEMA [None]
  - PARALYSIS [None]
  - INJECTION SITE REACTION [None]
